FAERS Safety Report 20738917 (Version 1)
Quarter: 2022Q2

REPORT INFORMATION
  Report Type: Spontaneous
  Country: US (occurrence: US)
  Receive Date: 20220422
  Receipt Date: 20220422
  Transmission Date: 20220721
  Serious: Yes (Other)
  Sender: FDA-Public Use
  Company Number: US-NOVARTISPH-NVSC2022US086916

PATIENT
  Age: 9 Year
  Sex: Female

DRUGS (1)
  1. TRAMETINIB [Suspect]
     Active Substance: TRAMETINIB
     Indication: Glioneuronal tumour
     Dosage: UNK (3.5 MONTH AGO)
     Route: 065

REACTIONS (7)
  - Malignant neoplasm progression [Unknown]
  - Glioneuronal tumour [Not Recovered/Not Resolved]
  - Coeliac disease [Unknown]
  - Product use complaint [Unknown]
  - Abdominal symptom [Unknown]
  - Wrong technique in product usage process [Unknown]
  - Product use in unapproved indication [Unknown]
